FAERS Safety Report 26216250 (Version 1)
Quarter: 2025Q4

REPORT INFORMATION
  Report Type: Spontaneous
  Country: EU (occurrence: EU)
  Receive Date: 20251231
  Receipt Date: 20251231
  Transmission Date: 20260117
  Serious: Yes (Disabling)
  Sender: CELLTRION
  Company Number: None

PATIENT

DRUGS (2)
  1. ADALIMUMAB [Suspect]
     Active Substance: ADALIMUMAB
     Indication: Sarcoidosis
     Dosage: 40MG, Q2WEEKS
     Route: 058
     Dates: start: 202502, end: 20251101
  2. ADALIMUMAB [Suspect]
     Active Substance: ADALIMUMAB

REACTIONS (2)
  - Deafness [Not Recovered/Not Resolved]
  - Intentional product use issue [Unknown]

NARRATIVE: CASE EVENT DATE: 20251104
